FAERS Safety Report 14346541 (Version 4)
Quarter: 2020Q2

REPORT INFORMATION
  Report Type: Spontaneous
  Country: CZ (occurrence: CZ)
  Receive Date: 20180103
  Receipt Date: 20200402
  Transmission Date: 20200713
  Serious: Yes (Life-Threatening, Hospitalization, Other)
  Sender: FDA-Public Use
  Company Number: CZ-PFIZER INC-2017554292

PATIENT
  Age: 67 Year
  Sex: Female
  Weight: 85 kg

DRUGS (17)
  1. MILURIT [Concomitant]
     Active Substance: ALLOPURINOL
     Dosage: UNK
     Dates: start: 200509
  2. FURIX [Concomitant]
     Dosage: UNK
     Dates: start: 20150331
  3. DIOVAN [Suspect]
     Active Substance: VALSARTAN
     Dosage: UNK
     Route: 048
     Dates: start: 20160916, end: 20161012
  4. EUPHYLLINE /00012201/ [Concomitant]
     Active Substance: THEOPHYLLINE ANHYDROUS
     Dosage: UNK
     Dates: start: 20140810
  5. ATROVENT [Concomitant]
     Active Substance: IPRATROPIUM BROMIDE
     Dosage: UNK
     Dates: start: 201410
  6. ARAVA [Suspect]
     Active Substance: LEFLUNOMIDE
     Dosage: 20 MG, 2X/DAY
     Route: 048
     Dates: start: 201501, end: 20160310
  7. DIOVAN [Suspect]
     Active Substance: VALSARTAN
     Dosage: UNK
     Route: 048
     Dates: start: 20150514, end: 20150915
  8. SULFASALAZINE DELAYED-RELEASE [Concomitant]
     Active Substance: SULFASALAZINE
     Dosage: UNK
     Dates: start: 2014, end: 20160307
  9. IMIPENEM [Concomitant]
     Active Substance: IMIPENEM
  10. METHOTREXATE. [Concomitant]
     Active Substance: METHOTREXATE
  11. DIOVAN [Suspect]
     Active Substance: VALSARTAN
     Indication: CARDIAC FAILURE
     Dosage: 50 MG, 2X/DAY
     Route: 048
     Dates: start: 20150422, end: 20150429
  12. MEDROL [Suspect]
     Active Substance: METHYLPREDNISOLONE
     Indication: RHEUMATOID ARTHRITIS
     Dosage: 8 MG, 1X/DAY
     Route: 048
     Dates: start: 201601, end: 20160307
  13. MEDROL [Suspect]
     Active Substance: METHYLPREDNISOLONE
     Dosage: 8 MG, 1X/DAY
     Route: 048
     Dates: end: 20160628
  14. DIOVAN [Suspect]
     Active Substance: VALSARTAN
     Dosage: UNK
     Route: 048
     Dates: start: 20161012
  15. PLAQUENIL /00072602/ [Concomitant]
     Active Substance: HYDROXYCHLOROQUINE DIPHOSPHATE
  16. MEDROL [Suspect]
     Active Substance: METHYLPREDNISOLONE
     Dosage: 16 MG, 1X/DAY
     Route: 048
     Dates: start: 20160715
  17. ACETAMINOPHEN. [Concomitant]
     Active Substance: ACETAMINOPHEN

REACTIONS (20)
  - Abdominal pain [Recovered/Resolved]
  - Pyrexia [Recovered/Resolved]
  - C-reactive protein increased [Recovered/Resolved]
  - Acute kidney injury [Recovered/Resolved]
  - Endocarditis [Recovered/Resolved]
  - Hypotension [Recovered/Resolved with Sequelae]
  - Liver injury [Recovered/Resolved]
  - Leukocytosis [Recovered/Resolved]
  - Peripheral ischaemia [Recovered/Resolved]
  - Vulvovaginitis [Recovered/Resolved]
  - Gastritis [Recovered/Resolved]
  - Dyspnoea [Recovered/Resolved with Sequelae]
  - Sepsis [Recovered/Resolved]
  - Gastroenteritis [Recovered/Resolved]
  - Shock [Recovered/Resolved]
  - Inflammatory marker increased [Recovered/Resolved]
  - Atrial fibrillation [Recovered/Resolved]
  - Pneumonia [Recovered/Resolved]
  - Cardiac tamponade [Recovered/Resolved]
  - Tachycardia [Recovered/Resolved with Sequelae]

NARRATIVE: CASE EVENT DATE: 20160308
